FAERS Safety Report 9678461 (Version 1)
Quarter: 2013Q4

REPORT INFORMATION
  Report Type: Spontaneous
  Country: FR (occurrence: FR)
  Receive Date: 20131108
  Receipt Date: 20131108
  Transmission Date: 20140711
  Serious: Yes (Hospitalization)
  Sender: FDA-Public Use
  Company Number: FR-BRISTOL-MYERS SQUIBB COMPANY-19739580

PATIENT
  Age: 77 Year
  Sex: Male

DRUGS (7)
  1. ERBITUX SOLN FOR INF [Suspect]
     Indication: ADENOCARCINOMA
     Dosage: 08FEB12 - 22NOV12:12 COURSES?18MAR13 - 02MAY13:4 COURSES?16MAY-16MAY13
     Route: 042
     Dates: start: 20120208, end: 20130516
  2. FOLINIC ACID [Concomitant]
     Indication: ADENOCARCINOMA
     Dosage: 02F-16M11:4C?31AU-12OC:4C?08F-22N12:12C?18MR-02MAY:4C?16MAY13-5C
     Dates: start: 20110202
  3. FLUOROURACIL [Concomitant]
     Indication: ADENOCARCINOMA
     Dosage: 02FEB-16MAR11(4C);31AU-12OCT-2011(4C);08FEB-22NOV-2012(12C);18MR-02MAY-2013(4C);16MAY2013(5THC)
     Dates: start: 20110202
  4. OXALIPLATIN [Concomitant]
     Indication: ADENOCARCINOMA
     Dosage: 02FEB-16MAR2011(4C);31AUG-12OCT2011(4C);08FEB-22NOV2012(12C);18MAR-02MAY2013(4C);16MAY2013(5THC)
     Dates: start: 20110202
  5. EMEND [Concomitant]
     Indication: PREMEDICATION
     Route: 048
     Dates: start: 20130516, end: 20130516
  6. POLARAMINE [Concomitant]
     Indication: PREMEDICATION
     Route: 042
     Dates: start: 20130516, end: 20130516
  7. METHYLPREDNISOLONE [Concomitant]
     Indication: PREMEDICATION
     Route: 042
     Dates: start: 20130516, end: 20130516

REACTIONS (3)
  - Haemolytic anaemia [Recovered/Resolved]
  - Hyperthermia [Recovered/Resolved]
  - Chills [Recovered/Resolved]
